FAERS Safety Report 9924261 (Version 1)
Quarter: 2014Q1

REPORT INFORMATION
  Report Type: Spontaneous
  Country: US (occurrence: US)
  Receive Date: 20140226
  Receipt Date: 20140226
  Transmission Date: 20141002
  Serious: No
  Sender: FDA-Public Use
  Company Number: US-009507513-1402USA009434

PATIENT
  Sex: Female

DRUGS (3)
  1. ZETIA [Suspect]
     Dosage: UNK
  2. FOSAMAX [Concomitant]
     Dosage: UNK
  3. CRESTOR [Concomitant]
     Dosage: UNK

REACTIONS (1)
  - Angioedema [Unknown]
